FAERS Safety Report 6687262-5 (Version None)
Quarter: 2010Q2

REPORT INFORMATION
  Report Type: 
  Country: None (occurrence: None)
  Receive Date: 20100415
  Receipt Date: 20100413
  Transmission Date: 20101027
  Serious: Yes (Death)
  Sender: FDA-Public Use
  Company Number: ALL1-2010-00351

PATIENT
  Sex: Male

DRUGS (1)
  1. FOSRENOL [Suspect]
     Indication: HYPERPHOSPHATAEMIA
     Dosage: 500 MG WITH EACH MEAL, ORAL
     Route: 048
     Dates: start: 20090101

REACTIONS (3)
  - GANGRENE [None]
  - REFUSAL OF TREATMENT BY PATIENT [None]
  - SEPSIS [None]
